FAERS Safety Report 4616305-5 (Version None)
Quarter: 2005Q1

REPORT INFORMATION
  Report Type: 
  Country: None (occurrence: None)
  Receive Date: 20050321
  Receipt Date: 20050315
  Transmission Date: 20050727
  Serious: Yes (Death, Hospitalization)
  Sender: FDA-Public Use
  Company Number: 2005UW03672

PATIENT
  Age: 32 Year
  Sex: Female
  Weight: 30.4504 kg

DRUGS (2)
  1. DIPRIVAN [Suspect]
     Indication: SEDATION
     Dosage: MG/KG/HR IV
     Route: 042
     Dates: start: 20050222, end: 20050228
  2. PAXIL [Concomitant]

REACTIONS (11)
  - ADVERSE DRUG REACTION [None]
  - ARRHYTHMIA [None]
  - BLOOD TRIGLYCERIDES INCREASED [None]
  - CYANOSIS [None]
  - INTRACRANIAL PRESSURE INCREASED [None]
  - ISCHAEMIA [None]
  - METABOLIC ACIDOSIS [None]
  - MUSCULOSKELETAL STIFFNESS [None]
  - PERIPHERAL COLDNESS [None]
  - RHABDOMYOLYSIS [None]
  - VENTRICULAR TACHYCARDIA [None]
